FAERS Safety Report 8050693-5 (Version None)
Quarter: 2012Q1

REPORT INFORMATION
  Report Type: 
  Country: None (occurrence: None)
  Receive Date: 20120117
  Receipt Date: 20120117
  Transmission Date: 20120608
  Serious: Yes (Other)
  Sender: FDA-Public Use
  Company Number: None

PATIENT
  Age: 62 Year
  Sex: Male
  Weight: 118.84 kg

DRUGS (1)
  1. ZICAM ALLERGY RELIEF NASAL GEL [Suspect]
     Indication: NASAL CONGESTION
     Dosage: 1 SPRAY IN EACH NOSTRIL
     Route: 045
     Dates: start: 20120111, end: 20120113

REACTIONS (4)
  - RHINORRHOEA [None]
  - NASAL DISCOMFORT [None]
  - NASAL CONGESTION [None]
  - EPISTAXIS [None]
